FAERS Safety Report 9779116 (Version 1)
Quarter: 2013Q4

REPORT INFORMATION
  Report Type: Spontaneous
  Country: US (occurrence: US)
  Receive Date: 20131223
  Receipt Date: 20131223
  Transmission Date: 20140711
  Serious: No
  Sender: FDA-Public Use
  Company Number: US-ENDO PHARMACEUTICALS INC.-OPCR20130382

PATIENT
  Sex: Male
  Weight: 99.88 kg

DRUGS (1)
  1. OPANA ER 40MG [Suspect]
     Indication: PAIN
     Route: 048

REACTIONS (2)
  - Vomiting [Recovered/Resolved]
  - Drug effect decreased [Not Recovered/Not Resolved]
